FAERS Safety Report 18969721 (Version 1)
Quarter: 2021Q1

REPORT INFORMATION
  Report Type: Spontaneous
  Country: US (occurrence: US)
  Receive Date: 20210303
  Receipt Date: 20210303
  Transmission Date: 20210420
  Serious: Yes (Death)
  Sender: FDA-Public Use
  Company Number: None

PATIENT
  Age: 78 Year
  Sex: Female

DRUGS (3)
  1. REMDESIVIR 100MG [Suspect]
     Active Substance: REMDESIVIR
     Dosage: ?          OTHER ROUTE:IVPB?
  2. ZITHROMAX [Suspect]
     Active Substance: AZITHROMYCIN DIHYDRATE
     Dosage: ?          OTHER ROUTE:IVPB?
     Dates: start: 20201221, end: 20201228
  3. REMDESIVIR 100MG [Suspect]
     Active Substance: REMDESIVIR
     Dosage: ?          OTHER ROUTE:IVPB?
     Dates: start: 20201220, end: 20201224

REACTIONS (1)
  - COVID-19 [None]

NARRATIVE: CASE EVENT DATE: 20201223
